FAERS Safety Report 15101619 (Version 2)
Quarter: 2018Q3

REPORT INFORMATION
  Report Type: Spontaneous
  Country: FR (occurrence: FR)
  Receive Date: 20180703
  Receipt Date: 20180720
  Transmission Date: 20181010
  Serious: Yes (Death, Other)
  Sender: FDA-Public Use
  Company Number: FR-SA-2018SA165695

PATIENT
  Age: 62 Year
  Sex: Male
  Weight: 72 kg

DRUGS (13)
  1. PREDNISONE. [Suspect]
     Active Substance: PREDNISONE
     Route: 048
     Dates: start: 20180427, end: 20180510
  2. CISPLATIN. [Suspect]
     Active Substance: CISPLATIN
     Route: 041
     Dates: start: 20180430, end: 20180430
  3. TERALITHE [Concomitant]
     Active Substance: LITHIUM CARBONATE
  4. DOCETAXEL. [Suspect]
     Active Substance: DOCETAXEL
     Route: 041
     Dates: start: 20180430, end: 20180430
  5. DIFFU K [Suspect]
     Active Substance: POTASSIUM CHLORIDE
     Route: 048
     Dates: start: 20180503, end: 20180508
  6. LARGACTIL [CHLORPROMAZINE HYDROCHLORIDE] [Concomitant]
  7. LANSOPRAZOLE. [Concomitant]
     Active Substance: LANSOPRAZOLE
  8. BETAHISTINE HYDROCHLORIDE [Concomitant]
     Active Substance: BETAHISTINE HYDROCHLORIDE
  9. LORAZEPAM. [Concomitant]
     Active Substance: LORAZEPAM
  10. SULFARLEM [Concomitant]
     Active Substance: ANETHOLTRITHION
  11. CETIRIZINE DIHYDROCHLORIDE [Concomitant]
     Active Substance: CETIRIZINE HYDROCHLORIDE
  12. AKINETON [BIPERIDEN HYDROCHLORIDE] [Concomitant]
  13. ACIDE FOLIQUE [Concomitant]
     Active Substance: FOLIC ACID

REACTIONS (4)
  - Septic shock [Fatal]
  - Intestinal obstruction [Fatal]
  - Renal failure [Fatal]
  - Hyperkalaemia [Fatal]

NARRATIVE: CASE EVENT DATE: 20180508
